FAERS Safety Report 15408919 (Version 2)
Quarter: 2018Q3

REPORT INFORMATION
  Report Type: Spontaneous
  Country: DK (occurrence: DK)
  Receive Date: 20180920
  Receipt Date: 20180921
  Transmission Date: 20181010
  Serious: Yes (Other)
  Sender: FDA-Public Use
  Company Number: DK-JNJFOC-20180919522

PATIENT
  Age: 47 Year
  Sex: Female

DRUGS (12)
  1. LYRICA [Suspect]
     Active Substance: PREGABALIN
     Indication: ANXIETY
     Route: 048
     Dates: start: 20160609, end: 20161117
  2. OXAPAX [Suspect]
     Active Substance: OXAZEPAM
     Indication: ANXIETY
     Route: 048
     Dates: start: 20170819, end: 20170905
  3. SEROQUEL [Suspect]
     Active Substance: QUETIAPINE FUMARATE
     Indication: DEPRESSION
     Route: 048
     Dates: start: 20160215, end: 20170321
  4. IMOCLONE [Suspect]
     Active Substance: ZOPICLONE
     Indication: INSOMNIA
     Route: 048
     Dates: start: 20160329, end: 20170222
  5. LITAREX [Suspect]
     Active Substance: LITHIUM CITRATE
     Indication: DEPRESSION
     Route: 048
     Dates: start: 2013
  6. OXAPAX [Suspect]
     Active Substance: OXAZEPAM
     Indication: ANXIETY
     Route: 048
     Dates: start: 20160331, end: 20170106
  7. SEROQUEL [Suspect]
     Active Substance: QUETIAPINE FUMARATE
     Indication: DEPRESSION
     Route: 048
     Dates: start: 20110224, end: 20140611
  8. ABILIFY [Suspect]
     Active Substance: ARIPIPRAZOLE
     Indication: BIPOLAR DISORDER
     Dosage: BY 2015
     Route: 048
     Dates: start: 20150902, end: 20151126
  9. RISPERDAL [Suspect]
     Active Substance: RISPERIDONE
     Indication: BIPOLAR DISORDER
     Dosage: 2?4 MG
     Route: 048
     Dates: start: 20130107, end: 20130403
  10. TRUXAL [Suspect]
     Active Substance: CHLORPROTHIXENE
     Indication: PRODUCT USED FOR UNKNOWN INDICATION
     Dosage: 50?150 MG
     Route: 065
     Dates: start: 20100415, end: 20150902
  11. TRUXAL [Suspect]
     Active Substance: CHLORPROTHIXENE
     Indication: PRODUCT USED FOR UNKNOWN INDICATION
     Route: 065
     Dates: start: 20130812, end: 20130827
  12. ABILIFY [Suspect]
     Active Substance: ARIPIPRAZOLE
     Indication: BIPOLAR DISORDER
     Dosage: BY 2017
     Route: 048
     Dates: start: 20170718, end: 20170727

REACTIONS (6)
  - Tooth infection [Unknown]
  - Tooth abscess [Unknown]
  - Gingivitis [Not Recovered/Not Resolved]
  - Oral pain [Not Recovered/Not Resolved]
  - Hypoaesthesia [Not Recovered/Not Resolved]
  - Dental caries [Not Recovered/Not Resolved]

NARRATIVE: CASE EVENT DATE: 2013
